FAERS Safety Report 25740372 (Version 1)
Quarter: 2025Q3

REPORT INFORMATION
  Report Type: Spontaneous
  Country: US (occurrence: US)
  Receive Date: 20250829
  Receipt Date: 20250829
  Transmission Date: 20251020
  Serious: Yes (Other)
  Sender: PFIZER
  Company Number: US-PFIZER INC-PV202500102936

PATIENT
  Sex: Female

DRUGS (3)
  1. LORBRENA [Suspect]
     Active Substance: LORLATINIB
     Indication: Anaplastic lymphoma kinase gene mutation
  2. LORBRENA [Suspect]
     Active Substance: LORLATINIB
     Indication: Non-small cell lung cancer
  3. LORBRENA [Suspect]
     Active Substance: LORLATINIB
     Dates: start: 20241025

REACTIONS (7)
  - Neuropathy peripheral [Unknown]
  - Brain fog [Unknown]
  - Speech disorder [Unknown]
  - Diplopia [Unknown]
  - Memory impairment [Unknown]
  - Cognitive disorder [Unknown]
  - Nervousness [Unknown]
